FAERS Safety Report 7677548-X (Version None)
Quarter: 2011Q3

REPORT INFORMATION
  Report Type: 
  Country: None (occurrence: None)
  Receive Date: 20110811
  Receipt Date: 20110801
  Transmission Date: 20111222
  Serious: Yes (Hospitalization)
  Sender: FDA-Public Use
  Company Number: US-JNJFOC-20090106835

PATIENT
  Sex: Male
  Weight: 142 kg

DRUGS (2)
  1. REMICADE [Suspect]
     Indication: CROHN'S DISEASE
     Route: 042
     Dates: start: 20070605
  2. REMICADE [Suspect]
     Dosage: TOTAL 9 DOSES
     Route: 042
     Dates: start: 20081126

REACTIONS (2)
  - PERIRECTAL ABSCESS [None]
  - ABDOMINAL PAIN [None]
